FAERS Safety Report 23527067 (Version 1)
Quarter: 2024Q1

REPORT INFORMATION
  Report Type: Spontaneous
  Country: US (occurrence: US)
  Receive Date: 20240215
  Receipt Date: 20240215
  Transmission Date: 20240410
  Serious: No
  Sender: FDA-Public Use
  Company Number: US-ABBVIE-5640425

PATIENT
  Sex: Male

DRUGS (2)
  1. CYCLOSPORINE [Suspect]
     Active Substance: CYCLOSPORINE
     Indication: Product used for unknown indication
     Dosage: FORM STRENGTH: 0.05 PERCENT
     Route: 047
  2. CYCLOSPORINE [Suspect]
     Active Substance: CYCLOSPORINE
     Dosage: FORM STRENGTH: 0.05 PERCENT
     Route: 047

REACTIONS (4)
  - Eye irritation [Unknown]
  - Eye irritation [Recovered/Resolved]
  - Headache [Recovered/Resolved]
  - Headache [Unknown]
